FAERS Safety Report 7893263-1 (Version None)
Quarter: 2011Q4

REPORT INFORMATION
  Report Type: 
  Country: None (occurrence: None)
  Receive Date: 20111104
  Receipt Date: 20111104
  Transmission Date: 20120403
  Serious: Yes (Hospitalization)
  Sender: FDA-Public Use
  Company Number: PHHO2010GR06025

PATIENT
  Sex: Male
  Weight: 75 kg

DRUGS (1)
  1. EXJADE [Suspect]
     Indication: IRON OVERLOAD
     Dosage: 10 MG/KG, QD
     Route: 048
     Dates: start: 20100330, end: 20100421

REACTIONS (3)
  - RASH [None]
  - PYREXIA [None]
  - PRURITUS [None]
